FAERS Safety Report 20082036 (Version 1)
Quarter: 2021Q4

REPORT INFORMATION
  Report Type: Spontaneous
  Country: US (occurrence: None)
  Receive Date: 20211117
  Receipt Date: 20211117
  Transmission Date: 20220303
  Serious: Yes (Hospitalization)
  Sender: FDA-Public Use
  Company Number: None

PATIENT
  Age: 60 Year
  Sex: Male
  Weight: 80.55 kg

DRUGS (1)
  1. CAPECITABINE [Suspect]
     Active Substance: CAPECITABINE
     Indication: Neuroendocrine tumour
     Route: 048
     Dates: end: 20211102

REACTIONS (9)
  - Confusional state [None]
  - Balance disorder [None]
  - Tremor [None]
  - Dysarthria [None]
  - Unresponsive to stimuli [None]
  - Abnormal behaviour [None]
  - Blood calcium increased [None]
  - Ammonia increased [None]
  - Drug interaction [None]

NARRATIVE: CASE EVENT DATE: 20211002
